FAERS Safety Report 13456332 (Version 1)
Quarter: 2017Q2

REPORT INFORMATION
  Report Type: Spontaneous
  Country: GB (occurrence: GB)
  Receive Date: 20170419
  Receipt Date: 20170419
  Transmission Date: 20170830
  Serious: Yes (Disabling, Other)
  Sender: FDA-Public Use
  Company Number: GB-ASTRAZENECA-2017SE38441

PATIENT
  Age: 42 Year
  Sex: Female
  Weight: 44.5 kg

DRUGS (3)
  1. ZOLADEX [Suspect]
     Active Substance: GOSERELIN ACETATE
     Indication: ENDOMETRIOSIS
     Route: 058
     Dates: start: 20170308
  2. KALMS [Concomitant]
  3. TIBOLONE [Concomitant]
     Active Substance: TIBOLONE

REACTIONS (14)
  - Tension headache [Not Recovered/Not Resolved]
  - Formication [Not Recovered/Not Resolved]
  - Nausea [Not Recovered/Not Resolved]
  - Decreased appetite [Not Recovered/Not Resolved]
  - Tearfulness [Not Recovered/Not Resolved]
  - Musculoskeletal pain [Not Recovered/Not Resolved]
  - Myalgia [Not Recovered/Not Resolved]
  - Tremor [Not Recovered/Not Resolved]
  - Fatigue [Not Recovered/Not Resolved]
  - Paraesthesia [Not Recovered/Not Resolved]
  - Bone pain [Not Recovered/Not Resolved]
  - Retching [Not Recovered/Not Resolved]
  - Dizziness [Not Recovered/Not Resolved]
  - Memory impairment [Not Recovered/Not Resolved]

NARRATIVE: CASE EVENT DATE: 20170309
